FAERS Safety Report 15307229 (Version 11)
Quarter: 2019Q4

REPORT INFORMATION
  Report Type: Spontaneous
  Country: US (occurrence: US)
  Receive Date: 20180822
  Receipt Date: 20191024
  Transmission Date: 20200122
  Serious: Yes (Hospitalization, Other)
  Sender: FDA-Public Use
  Company Number: US-GLAXOSMITHKLINE-US2018GSK151895

PATIENT
  Sex: Female

DRUGS (7)
  1. PREVACID [Suspect]
     Active Substance: LANSOPRAZOLE
     Indication: GASTROOESOPHAGEAL REFLUX DISEASE
     Dosage: 30 MG, QD
     Route: 065
  2. PANTOPRAZOLE [Suspect]
     Active Substance: PANTOPRAZOLE
     Indication: GASTROOESOPHAGEAL REFLUX DISEASE
     Dosage: 40 MG, QD
     Route: 048
  3. OMEPRAZOLE. [Suspect]
     Active Substance: OMEPRAZOLE
     Indication: GASTROOESOPHAGEAL REFLUX DISEASE
     Dosage: 40 MG, QD
     Route: 048
  4. OMEPRAZOLE. [Suspect]
     Active Substance: OMEPRAZOLE
     Indication: PRODUCT USED FOR UNKNOWN INDICATION
     Dosage: 20 MG, BID
     Route: 065
  5. PANTOPRAZOLE [Suspect]
     Active Substance: PANTOPRAZOLE
     Indication: PRODUCT USED FOR UNKNOWN INDICATION
     Dosage: UNK
     Route: 065
  6. PREVACID [Suspect]
     Active Substance: LANSOPRAZOLE
     Indication: GASTROOESOPHAGEAL REFLUX DISEASE
     Dosage: 30 MG, BID
     Route: 065
  7. OMEPRAZOLE. [Suspect]
     Active Substance: OMEPRAZOLE
     Dosage: 20 MG, QD
     Route: 048

REACTIONS (22)
  - Nephrolithiasis [Unknown]
  - Dysuria [Unknown]
  - Benign renal neoplasm [Unknown]
  - Ureterolithiasis [Unknown]
  - Kidney infection [Unknown]
  - Renal cyst excision [Unknown]
  - Renal colic [Unknown]
  - Acute kidney injury [Unknown]
  - Prerenal failure [Unknown]
  - Renal pain [Unknown]
  - Pollakiuria [Unknown]
  - Renal mass [Unknown]
  - Ureteral disorder [Unknown]
  - Renal failure [Unknown]
  - Nephrectomy [Unknown]
  - Urinary retention [Unknown]
  - Costovertebral angle tenderness [Unknown]
  - Kidney angiomyolipoma [Unknown]
  - Renal cancer [Unknown]
  - Renal impairment [Unknown]
  - Renal disorder [Unknown]
  - Nocturia [Unknown]
